FAERS Safety Report 15958638 (Version 1)
Quarter: 2019Q1

REPORT INFORMATION
  Report Type: Spontaneous
  Country: US (occurrence: US)
  Receive Date: 20190213
  Receipt Date: 20190213
  Transmission Date: 20190417
  Serious: No
  Sender: FDA-Public Use
  Company Number: US-PURDUE-USA-2019-0145764

PATIENT
  Sex: Female

DRUGS (2)
  1. BUTRANS [Suspect]
     Active Substance: BUPRENORPHINE
     Indication: PRODUCT USED FOR UNKNOWN INDICATION
     Dosage: 20 MCG/HR, WEEKLY
     Route: 062
     Dates: end: 20190118
  2. BUTRANS [Suspect]
     Active Substance: BUPRENORPHINE
     Dosage: UNK
     Route: 062

REACTIONS (4)
  - Product adhesion issue [Unknown]
  - Wrong technique in product usage process [Recovered/Resolved]
  - Drug hypersensitivity [Not Recovered/Not Resolved]
  - Application site erythema [Not Recovered/Not Resolved]
